FAERS Safety Report 16069513 (Version 3)
Quarter: 2019Q2

REPORT INFORMATION
  Report Type: Spontaneous
  Country: US (occurrence: US)
  Receive Date: 20190314
  Receipt Date: 20190411
  Transmission Date: 20190711
  Serious: No
  Sender: FDA-Public Use
  Company Number: US-GLAXOSMITHKLINE-US2019044372

PATIENT
  Sex: Female

DRUGS (1)
  1. VENTOLIN HFA [Suspect]
     Active Substance: ALBUTEROL SULFATE
     Indication: PRODUCT USED FOR UNKNOWN INDICATION
     Dosage: 2 PUFF(S), UNK

REACTIONS (7)
  - Secretion discharge [Unknown]
  - Product storage error [Unknown]
  - Wrong technique in device usage process [Unknown]
  - Cough [Unknown]
  - Product complaint [Unknown]
  - Oral pain [Unknown]
  - Product dose omission [Unknown]
